FAERS Safety Report 8032868-4 (Version None)
Quarter: 2011Q4

REPORT INFORMATION
  Report Type: 
  Country: None (occurrence: None)
  Receive Date: 20111229
  Receipt Date: 20111215
  Transmission Date: 20120403
  Serious: Yes (Other)
  Sender: FDA-Public Use
  Company Number: 2011SP058678

PATIENT
  Sex: Female

DRUGS (3)
  1. RIBAVIRIN [Suspect]
     Indication: HEPATITIS C
     Dates: start: 20111016
  2. PEG-INTRON [Suspect]
     Indication: HEPATITIS C
     Dates: start: 20111016
  3. TELAPREVIR [Suspect]
     Indication: HEPATITIS C
     Dates: start: 20111016

REACTIONS (10)
  - NAUSEA [None]
  - THERAPY REGIMEN CHANGED [None]
  - VOMITING [None]
  - LOSS OF CONSCIOUSNESS [None]
  - ABDOMINAL DISCOMFORT [None]
  - DIZZINESS [None]
  - ASTHENIA [None]
  - PAIN IN EXTREMITY [None]
  - MYALGIA [None]
  - SLEEP DISORDER [None]
